FAERS Safety Report 7344212-6 (Version None)
Quarter: 2011Q1

REPORT INFORMATION
  Report Type: 
  Country: None (occurrence: None)
  Receive Date: 20110310
  Receipt Date: 20100823
  Transmission Date: 20110831
  Serious: No
  Sender: FDA-Public Use
  Company Number: A0877200A

PATIENT
  Age: 45 Year
  Sex: Male

DRUGS (2)
  1. NICORETTE (MINT) [Suspect]
     Dates: start: 20100810, end: 20100822
  2. VALIUM [Concomitant]

REACTIONS (1)
  - VERTIGO [None]
